FAERS Safety Report 7503883-1 (Version None)
Quarter: 2011Q2

REPORT INFORMATION
  Report Type: 
  Country: None (occurrence: None)
  Receive Date: 20110525
  Receipt Date: 20110420
  Transmission Date: 20111010
  Serious: Yes (Hospitalization)
  Sender: FDA-Public Use
  Company Number: US-BAYER-2011-034727

PATIENT
  Age: 22 Year
  Sex: Female

DRUGS (1)
  1. MIRENA [Suspect]
     Indication: CONTRACEPTION
     Dosage: 20 ?G, CONT
     Route: 015
     Dates: start: 20071001

REACTIONS (6)
  - APHAGIA [None]
  - BACTERIAL INFECTION [None]
  - VAGINAL HAEMORRHAGE [None]
  - NAUSEA [None]
  - HEADACHE [None]
  - DEVICE EXPULSION [None]
